FAERS Safety Report 7237085-3 (Version None)
Quarter: 2011Q1

REPORT INFORMATION
  Report Type: 
  Country: None (occurrence: None)
  Receive Date: 20110121
  Receipt Date: 20110119
  Transmission Date: 20110831
  Serious: Yes (Hospitalization, Other)
  Sender: FDA-Public Use
  Company Number: US-ASTRAZENECA-2008UW00803

PATIENT
  Age: 18210 Day
  Sex: Female

DRUGS (21)
  1. XANAX [Concomitant]
     Route: 048
     Dates: start: 20040629
  2. AMITRIPTYLINE HCL [Concomitant]
     Dates: start: 20070814
  3. PERCOCET [Concomitant]
     Dosage: 10/325 MG QID
     Route: 048
     Dates: start: 20091231
  4. ULTRAM [Concomitant]
     Dates: end: 20091231
  5. LITHIUM CARBONATE [Concomitant]
     Indication: MOOD SWINGS
     Dosage: 300-600 MG DAILY
     Dates: start: 20040427
  6. HYDROCODONE [Concomitant]
     Dosage: 7.5/ 30,5/500, 5-325,7.5 / 500 , 10/ 325
     Dates: start: 20041108
  7. SEROQUEL [Suspect]
     Dosage: 25 MG TID/PRN
     Route: 048
     Dates: start: 20040427
  8. SEROQUEL [Suspect]
     Route: 048
     Dates: start: 20091231
  9. ZYPREXA [Concomitant]
     Indication: SLEEP DISORDER
  10. PROZAC [Concomitant]
     Route: 048
     Dates: start: 20040629
  11. TRAMADOL HCL [Concomitant]
     Dates: start: 20060824
  12. METHOCARBAMOL [Concomitant]
     Dates: start: 20070814
  13. VALIUM [Concomitant]
     Route: 048
     Dates: start: 20091231
  14. XANAX [Concomitant]
     Indication: ANXIETY
     Route: 048
     Dates: start: 20040401
  15. HYDROCHLOROTHIAZIDE [Concomitant]
     Dates: start: 20080828
  16. ACETAMINOPHEN [Concomitant]
     Dates: start: 20060427
  17. DIAZEPAM [Concomitant]
     Dosage: 05 MG TO 10 MG
     Dates: start: 20070425
  18. SEROQUEL [Suspect]
     Dosage: 100-300 MG AT NIGHT
     Route: 048
     Dates: start: 20040629
  19. CELEXA [Concomitant]
     Indication: AFFECTIVE DISORDER
     Dates: start: 20040427
  20. DIPHENHYDRAMINE [Concomitant]
     Dates: start: 20051103
  21. HYDROCHLOROTHIAZIDE [Concomitant]
     Dates: start: 20070820

REACTIONS (6)
  - ROAD TRAFFIC ACCIDENT [None]
  - FOOT FRACTURE [None]
  - EXCORIATION [None]
  - LOSS OF CONSCIOUSNESS [None]
  - WOUND [None]
  - BACK PAIN [None]
